FAERS Safety Report 21141544 (Version 1)
Quarter: 2022Q3

REPORT INFORMATION
  Report Type: Spontaneous
  Country: US (occurrence: None)
  Receive Date: 20220727
  Receipt Date: 20220727
  Transmission Date: 20221026
  Serious: Yes (Life-Threatening, Hospitalization, Other)
  Sender: FDA-Public Use
  Company Number: None

PATIENT
  Age: 72 Year
  Sex: Male
  Weight: 94.5 kg

DRUGS (7)
  1. MAGNESIUM CITRATE [Suspect]
     Active Substance: MAGNESIUM CITRATE
     Indication: Constipation
     Dosage: FREQUENCY : TWICE A DAY;?
     Route: 048
     Dates: start: 20220710, end: 20220714
  2. MAGNESIUM CITRATE [Suspect]
     Active Substance: MAGNESIUM CITRATE
     Indication: Constipation
     Dosage: FREQUENCY : TWICE A DAY;?
     Route: 048
     Dates: start: 20220710, end: 20220714
  3. ENTECAVIR [Concomitant]
     Active Substance: ENTECAVIR
  4. PANTOPRAZOLE [Concomitant]
     Active Substance: PANTOPRAZOLE
  5. LACTULOSE [Concomitant]
     Active Substance: LACTULOSE
  6. LISINOPRIL [Concomitant]
     Active Substance: LISINOPRIL
  7. OXYCODONE [Concomitant]
     Active Substance: OXYCODONE

REACTIONS (4)
  - Malaise [None]
  - Swelling [None]
  - Dysstasia [None]
  - Constipation [None]

NARRATIVE: CASE EVENT DATE: 20220715
